FAERS Safety Report 16672248 (Version 3)
Quarter: 2020Q3

REPORT INFORMATION
  Report Type: Report from Study
  Country: US (occurrence: US)
  Receive Date: 20190806
  Receipt Date: 20200710
  Transmission Date: 20201102
  Serious: Yes (Other)
  Sender: FDA-Public Use
  Company Number: US-ROCHE-2365147

PATIENT
  Age: 64 Year
  Sex: Male
  Weight: 92.62 kg

DRUGS (19)
  1. DIPHENHYDRAMINE. [Concomitant]
     Active Substance: DIPHENHYDRAMINE
     Dosage: PRIOR TO EACH OCREVUS INFUSION
     Route: 042
     Dates: start: 20170626
  2. VITAMIN C [Concomitant]
     Active Substance: ASCORBIC ACID
     Route: 065
     Dates: start: 20130919
  3. OCREVUS [Suspect]
     Active Substance: OCRELIZUMAB
     Route: 065
     Dates: start: 20180119
  4. KETOCONAZOLE. [Concomitant]
     Active Substance: KETOCONAZOLE
     Route: 065
  5. LATANOPROST. [Concomitant]
     Active Substance: LATANOPROST
     Route: 047
  6. ALPHA LIPOIC ACID [Concomitant]
     Active Substance: .ALPHA.-LIPOIC ACID
     Route: 065
     Dates: start: 20180619
  7. VITAMIN B COMPLEX [Concomitant]
     Active Substance: CYANOCOBALAMIN\DEXPANTHENOL\NIACINAMIDE\PYRIDOXINE HYDROCHLORIDE\RIBOFLAVIN 5^-PHOSPHATE SODIUM\THIAMINE HYDROCHLORIDE\VITAMIN B COMPLEX
     Route: 065
     Dates: start: 20160801
  8. METHYLPREDNISOLONE SODIUM SUCCINATE. [Concomitant]
     Active Substance: METHYLPREDNISOLONE SODIUM SUCCINATE
     Dosage: PRIOR TO EACH OCREVUS INFUSION
     Route: 042
  9. TAURINE [Concomitant]
     Active Substance: TAURINE
     Route: 065
     Dates: start: 20191024
  10. OCREVUS [Suspect]
     Active Substance: OCRELIZUMAB
     Indication: RELAPSING MULTIPLE SCLEROSIS
     Dosage: END DATE: 01/FEB/2019
     Route: 042
     Dates: start: 20170630
  11. STARLIX [Concomitant]
     Active Substance: NATEGLINIDE
     Indication: DIABETES MELLITUS
     Dosage: AS NEEDED
     Route: 048
     Dates: start: 20141106
  12. OCREVUS [Suspect]
     Active Substance: OCRELIZUMAB
     Route: 065
     Dates: start: 20170714
  13. CIALIS [Concomitant]
     Active Substance: TADALAFIL
     Route: 048
     Dates: start: 20190312
  14. DORZOLAMIDE;TIMOLOL [Concomitant]
     Active Substance: DORZOLAMIDE\TIMOLOL
     Dosage: 22.3 MG/6.8 MG/ML EYE DROPS.
     Route: 065
     Dates: start: 20191226
  15. FISH OIL [Concomitant]
     Active Substance: FISH OIL
     Route: 065
     Dates: start: 20191024
  16. VITAMIN D3 [Concomitant]
     Active Substance: CHOLECALCIFEROL
     Route: 048
     Dates: start: 20191226
  17. COQ10 [UBIDECARENONE] [Concomitant]
     Active Substance: UBIDECARENONE
     Route: 048
     Dates: start: 20191226
  18. OCREVUS [Suspect]
     Active Substance: OCRELIZUMAB
     Dosage: MOST RECENT INFUSION
     Route: 065
     Dates: start: 201902
  19. TAMSULOSIN [Concomitant]
     Active Substance: TAMSULOSIN
     Route: 048
     Dates: start: 20200123

REACTIONS (4)
  - Factor V Leiden mutation [Unknown]
  - Hyperkeratosis [Unknown]
  - Hepatitis B reactivation [Unknown]
  - Anal incontinence [Unknown]

NARRATIVE: CASE EVENT DATE: 20180402
